FAERS Safety Report 5079966-5 (Version None)
Quarter: 2006Q3

REPORT INFORMATION
  Report Type: 
  Country: None (occurrence: None)
  Receive Date: 20060815
  Receipt Date: 20060721
  Transmission Date: 20061208
  Serious: Yes (Hospitalization)
  Sender: FDA-Public Use
  Company Number: JP-GILEAD-2006-0009913

PATIENT
  Sex: Male

DRUGS (4)
  1. TRUVADA [Suspect]
     Indication: HIV INFECTION
     Route: 048
     Dates: start: 20050805
  2. STOCRIN [Concomitant]
     Dates: start: 20050805
  3. TAKEPRON [Concomitant]
     Dates: start: 20050706
  4. BACTRIM [Concomitant]
     Dates: start: 20050806, end: 20050819

REACTIONS (2)
  - ATYPICAL MYCOBACTERIAL INFECTION [None]
  - IMMUNE RECONSTITUTION SYNDROME [None]
